FAERS Safety Report 7638303-X (Version None)
Quarter: 2011Q3

REPORT INFORMATION
  Report Type: 
  Country: None (occurrence: None)
  Receive Date: 20110727
  Receipt Date: 20110727
  Transmission Date: 20111222
  Serious: Yes (Hospitalization)
  Sender: FDA-Public Use
  Company Number: None

PATIENT
  Sex: Female
  Weight: 90.718 kg

DRUGS (1)
  1. MOOD (OTC) [Suspect]
     Indication: TANNING
     Dosage: 1-2 OZ
     Route: 061
     Dates: start: 20080513, end: 20080513

REACTIONS (7)
  - SYNCOPE [None]
  - NAUSEA [None]
  - ANKLE FRACTURE [None]
  - PHYSICAL PRODUCT LABEL ISSUE [None]
  - PRODUCT FORMULATION ISSUE [None]
  - DIZZINESS [None]
  - FALL [None]
